FAERS Safety Report 18211434 (Version 1)
Quarter: 2020Q3

REPORT INFORMATION
  Report Type: Spontaneous
  Country: US (occurrence: US)
  Receive Date: 20200831
  Receipt Date: 20200831
  Transmission Date: 20201103
  Serious: No
  Sender: FDA-Public Use
  Company Number: US-009507513-2008USA012486

PATIENT
  Sex: Male

DRUGS (4)
  1. NASONEX [Suspect]
     Active Substance: MOMETASONE FUROATE
     Indication: OTORRHOEA
  2. CLANTIN [Concomitant]
     Indication: EUSTACHIAN TUBE DYSFUNCTION
     Dosage: UNK
     Dates: start: 20150402
  3. CLANTIN [Concomitant]
     Indication: OTORRHOEA
  4. NASONEX [Suspect]
     Active Substance: MOMETASONE FUROATE
     Indication: EUSTACHIAN TUBE DYSFUNCTION
     Dosage: UNK
     Dates: start: 20150402

REACTIONS (1)
  - Product use in unapproved indication [Unknown]

NARRATIVE: CASE EVENT DATE: 20150402
